FAERS Safety Report 13373061 (Version 1)
Quarter: 2017Q1

REPORT INFORMATION
  Report Type: Spontaneous
  Country: CA (occurrence: CA)
  Receive Date: 20170327
  Receipt Date: 20170327
  Transmission Date: 20170429
  Serious: Yes (Life-Threatening, Hospitalization, Disabling)
  Sender: FDA-Public Use
  Company Number: CA-JNJFOC-20170326406

PATIENT
  Age: 83 Year
  Sex: Female
  Weight: 55 kg

DRUGS (1)
  1. XARELTO [Suspect]
     Active Substance: RIVAROXABAN
     Indication: ATRIAL FIBRILLATION
     Route: 048

REACTIONS (5)
  - Blood pressure systolic increased [Recovered/Resolved]
  - Coagulation time prolonged [Recovered/Resolved]
  - Cerebral haematoma [Recovered/Resolved]
  - Haemorrhage [Recovered/Resolved]
  - Cerebral haemorrhage [Recovered/Resolved]
